FAERS Safety Report 8817208 (Version 2)
Quarter: 2012Q4

REPORT INFORMATION
  Report Type: 
  Country: US (occurrence: US)
  Receive Date: 20121001
  Receipt Date: 20121012
  Transmission Date: 20130627
  Serious: No
  Sender: FDA-Public Use
  Company Number: US-BAYER-2012-101785

PATIENT
  Age: 49 Year
  Sex: Female
  Weight: 56.69 kg

DRUGS (2)
  1. ALEVE CAPLET/TABLET,MIDOL EXTENDED RELIEF CAPLET [Suspect]
     Indication: PRODUCT USED FOR UNKNOWN INDICATION
     Dosage: 1 DF, UNK
     Route: 048
     Dates: start: 20120808
  2. ALLERGY SHOTS [Concomitant]
     Dosage: UNK

REACTIONS (7)
  - Eyelid oedema [None]
  - Eyelid oedema [Recovered/Resolved]
  - Nasal oedema [Recovered/Resolved]
  - Eyelid oedema [Recovered/Resolved]
  - Nasal oedema [Recovered/Resolved]
  - Eyelid oedema [Recovered/Resolved]
  - Nasal oedema [Recovered/Resolved]
